FAERS Safety Report 15801844 (Version 3)
Quarter: 2019Q3

REPORT INFORMATION
  Report Type: Spontaneous
  Country: US (occurrence: US)
  Receive Date: 20190109
  Receipt Date: 20190711
  Transmission Date: 20191004
  Serious: No
  Sender: FDA-Public Use
  Company Number: US-VERTEX PHARMACEUTICALS-2019-000162

PATIENT
  Sex: Male

DRUGS (2)
  1. ORKAMBI [Suspect]
     Active Substance: IVACAFTOR\LUMACAFTOR
     Indication: CYSTIC FIBROSIS
     Dosage: 1 PACKET (150/188MG GRANULES),  BID
     Route: 048
     Dates: start: 201809
  2. HYPERSAL [Concomitant]
     Active Substance: SODIUM CHLORIDE
     Dosage: UNK

REACTIONS (9)
  - Somnolence [Unknown]
  - Sputum increased [Recovered/Resolved]
  - Abnormal behaviour [Unknown]
  - Mood altered [Unknown]
  - Cough [Recovered/Resolved]
  - Crying [Unknown]
  - Irritability [Unknown]
  - Fatigue [Unknown]
  - Vomiting [Recovered/Resolved]

NARRATIVE: CASE EVENT DATE: 2018
